FAERS Safety Report 11806562 (Version 2)
Quarter: 2015Q4

REPORT INFORMATION
  Report Type: Report from Study
  Country: GB (occurrence: GB)
  Receive Date: 20151207
  Receipt Date: 20151211
  Transmission Date: 20160305
  Serious: Yes (Hospitalization, Other)
  Sender: FDA-Public Use
  Company Number: GB-GLAXOSMITHKLINE-GB2015000676

PATIENT
  Age: 58 Year
  Sex: Male
  Weight: 88 kg

DRUGS (2)
  1. PLACEBO [Suspect]
     Active Substance: UNSPECIFIED INGREDIENT
     Indication: TRANSPLANT REJECTION
     Dosage: UNK, CYC
     Route: 042
     Dates: start: 20140930
  2. VALGANCICLOVIR [Concomitant]
     Active Substance: VALGANCICLOVIR
     Indication: CYTOMEGALOVIRUS INFECTION
     Dosage: 450 MG, BID
     Route: 048
     Dates: start: 20141223, end: 20150107

REACTIONS (4)
  - Cytomegalovirus viraemia [Recovered/Resolved]
  - Neutropenic sepsis [Recovered/Resolved]
  - Pulmonary embolism [Recovered/Resolved]
  - Anal abscess [Recovered/Resolved]

NARRATIVE: CASE EVENT DATE: 20150105
